FAERS Safety Report 6013533-1 (Version None)
Quarter: 2008Q4

REPORT INFORMATION
  Report Type: 
  Country: None (occurrence: None)
  Receive Date: 20081219
  Receipt Date: 20081211
  Transmission Date: 20090506
  Serious: Yes (Other)
  Sender: FDA-Public Use
  Company Number: PHHY2008IT29247

PATIENT
  Age: 70 Year

DRUGS (3)
  1. EXELON [Suspect]
     Indication: DEMENTIA ALZHEIMER'S TYPE
     Dosage: 9.5 MG, QD
     Route: 062
     Dates: start: 20080930, end: 20081019
  2. HALDOL [Concomitant]
     Dosage: 3 MG, UNK
     Route: 048
  3. TEGRETOL [Concomitant]
     Dosage: 400 MG, UNK
     Route: 048

REACTIONS (1)
  - URTICARIA [None]
